FAERS Safety Report 22109212 (Version 1)
Quarter: 2023Q1

REPORT INFORMATION
  Report Type: Report from Study
  Country: US (occurrence: None)
  Receive Date: 20230317
  Receipt Date: 20230317
  Transmission Date: 20230418
  Serious: Yes (Hospitalization)
  Sender: FDA-Public Use
  Company Number: US-Eisai Medical Research-EC-2023-135617

PATIENT
  Age: 65 Year
  Sex: Female
  Weight: 99.3 kg

DRUGS (8)
  1. LENVIMA [Suspect]
     Active Substance: LENVATINIB
     Indication: Thyroid cancer
     Route: 048
     Dates: start: 202303, end: 202303
  2. BACLOFEN [Concomitant]
     Active Substance: BACLOFEN
     Dosage: DOSE AND FREQUENCY UNKNOWN
  3. CALCIUM CARBONATE\ERGOCALCIFEROL\RETINOL [Concomitant]
     Active Substance: CALCIUM CARBONATE\ERGOCALCIFEROL\RETINOL
     Dosage: DOSE AND FREQUENCY UNKNOWN
  4. CALCIUM CITRATE [Concomitant]
     Active Substance: CALCIUM CITRATE
     Dosage: DOSE AND FREQUENCY UNKNOWN
  5. DEXAMETHASONE [Concomitant]
     Active Substance: DEXAMETHASONE
     Dosage: DOSE AND FREQUENCY UNKNOWN
  6. PANTOPRAZOLE [Concomitant]
     Active Substance: PANTOPRAZOLE
     Dosage: DOSE AND FREQUENCY UNKNOWN
  7. SYNTHROID [Concomitant]
     Active Substance: LEVOTHYROXINE SODIUM
     Dosage: DOSE AND FREQUENCY UNKNOWN
  8. VITAMIN D [Concomitant]
     Active Substance: VITAMIN D NOS
     Dosage: DOSE AND FREQUENCY UNKNOWN

REACTIONS (5)
  - Hypertension [Unknown]
  - Lethargy [Unknown]
  - Blood pressure fluctuation [Not Recovered/Not Resolved]
  - Pallor [Unknown]
  - Asthenia [Unknown]

NARRATIVE: CASE EVENT DATE: 20230301
